FAERS Safety Report 6709121-1 (Version None)
Quarter: 2010Q2

REPORT INFORMATION
  Report Type: 
  Country: None (occurrence: None)
  Receive Date: 20100503
  Receipt Date: 20100503
  Transmission Date: 20101027
  Serious: Yes (Hospitalization)
  Sender: FDA-Public Use
  Company Number: None

PATIENT
  Sex: Female
  Weight: 74 kg

DRUGS (1)
  1. TEMOZOLOMIDE [Suspect]
     Dosage: 3885 MG

REACTIONS (9)
  - ATAXIA [None]
  - CEREBRAL ISCHAEMIA [None]
  - FACIAL PALSY [None]
  - HEMIPARESIS [None]
  - HERPES ZOSTER [None]
  - HYPOGLOSSAL NERVE PARALYSIS [None]
  - IIIRD NERVE PARALYSIS [None]
  - MENINGITIS HERPES [None]
  - SKIN EXFOLIATION [None]
